FAERS Safety Report 23339452 (Version 5)
Quarter: 2024Q1

REPORT INFORMATION
  Report Type: Spontaneous
  Country: US (occurrence: US)
  Receive Date: 20231226
  Receipt Date: 20240322
  Transmission Date: 20240409
  Serious: Yes (Life-Threatening, Hospitalization, Other)
  Sender: FDA-Public Use
  Company Number: US-REGENERON PHARMACEUTICALS, INC.-2023-155602

PATIENT
  Sex: Female

DRUGS (1)
  1. LIBTAYO [Suspect]
     Active Substance: CEMIPLIMAB-RWLC
     Indication: Squamous cell carcinoma of skin
     Dosage: 350 MG, Q3W
     Route: 042
     Dates: start: 202212

REACTIONS (31)
  - Cerebrovascular accident [Unknown]
  - Autoimmune disorder [Unknown]
  - Nosocomial infection [Unknown]
  - Pneumonia [Unknown]
  - Illness [Unknown]
  - Subarachnoid haemorrhage [Unknown]
  - Urinary tract infection staphylococcal [Unknown]
  - Paralysis [Unknown]
  - Sepsis [Unknown]
  - Superinfection [Unknown]
  - Balance disorder [Unknown]
  - Coordination abnormal [Unknown]
  - Full blood count decreased [Unknown]
  - Nervous system disorder [Unknown]
  - Cognitive disorder [Unknown]
  - Gastrointestinal disorder [Unknown]
  - Head injury [Unknown]
  - Respiratory rate decreased [Unknown]
  - Feeling cold [Unknown]
  - Irritability [Unknown]
  - Mood altered [Unknown]
  - Drug hypersensitivity [Unknown]
  - Muscle atrophy [Unknown]
  - Influenza like illness [Unknown]
  - Alopecia [Unknown]
  - Constipation [Unknown]
  - Headache [Unknown]
  - Abdominal pain [Unknown]
  - Nausea [Unknown]
  - Fatigue [Unknown]
  - Dyspnoea [Unknown]

NARRATIVE: CASE EVENT DATE: 20230201
